FAERS Safety Report 8222927-5 (Version None)
Quarter: 2012Q1

REPORT INFORMATION
  Report Type: 
  Country: None (occurrence: None)
  Receive Date: 20120320
  Receipt Date: 20120313
  Transmission Date: 20120608
  Serious: Yes (Hospitalization, Other)
  Sender: FDA-Public Use
  Company Number: PHHY2012FR017829

PATIENT
  Sex: Female

DRUGS (2)
  1. GILENYA [Suspect]
     Indication: RELAPSING-REMITTING MULTIPLE SCLEROSIS
     Dosage: 0.5 MG, DAILY
     Dates: start: 20111220, end: 20120129
  2. ACETAMINOPHEN W/ CODEINE [Concomitant]

REACTIONS (5)
  - EPILEPSY [None]
  - DIZZINESS [None]
  - NAUSEA [None]
  - VOMITING [None]
  - HEADACHE [None]
